FAERS Safety Report 12730084 (Version 3)
Quarter: 2016Q4

REPORT INFORMATION
  Report Type: Report from Study
  Country: VN (occurrence: VN)
  Receive Date: 20160909
  Receipt Date: 20161018
  Transmission Date: 20170207
  Serious: Yes (Hospitalization, Other)
  Sender: FDA-Public Use
  Company Number: VN-ASTRAZENECA-2016SE93533

PATIENT
  Age: 24797 Day
  Sex: Female

DRUGS (21)
  1. TELMISARTAN. [Concomitant]
     Active Substance: TELMISARTAN
     Indication: HYPERTENSION
     Route: 048
     Dates: start: 20160526
  2. CAT-354 CODE NOT BROKEN [Suspect]
     Active Substance: TRALOKINUMAB
     Indication: ASTHMA
     Route: 058
     Dates: start: 20150918
  3. CAT-354 CODE NOT BROKEN [Suspect]
     Active Substance: TRALOKINUMAB
     Indication: ASTHMA
     Route: 058
     Dates: start: 20160304
  4. NATRICLORID [Concomitant]
     Indication: DRY EYE
     Dosage: THREE TIMES A DAY
     Route: 047
     Dates: start: 20151225
  5. CAT-354 CODE NOT BROKEN [Suspect]
     Active Substance: TRALOKINUMAB
     Indication: ASTHMA
     Route: 058
     Dates: start: 20150821
  6. CAT-354 CODE NOT BROKEN [Suspect]
     Active Substance: TRALOKINUMAB
     Indication: ASTHMA
     Route: 058
     Dates: start: 20151016
  7. CAT-354 CODE NOT BROKEN [Suspect]
     Active Substance: TRALOKINUMAB
     Indication: ASTHMA
     Route: 058
     Dates: start: 20151210
  8. CAT-354 CODE NOT BROKEN [Suspect]
     Active Substance: TRALOKINUMAB
     Indication: ASTHMA
     Route: 058
     Dates: start: 20160108
  9. CAT-354 CODE NOT BROKEN [Suspect]
     Active Substance: TRALOKINUMAB
     Indication: ASTHMA
     Route: 058
     Dates: start: 20160330
  10. CAT-354 CODE NOT BROKEN [Suspect]
     Active Substance: TRALOKINUMAB
     Indication: ASTHMA
     Route: 058
     Dates: start: 20160622
  11. SYMBICORT [Suspect]
     Active Substance: BUDESONIDE\FORMOTEROL FUMARATE DIHYDRATE
     Indication: ASTHMA
     Dosage: 640/18 UG BID
     Route: 055
  12. ATORVASTATIN [Concomitant]
     Active Substance: ATORVASTATIN
     Indication: DYSLIPIDAEMIA
     Route: 048
     Dates: start: 20160426
  13. CAT-354 CODE NOT BROKEN [Suspect]
     Active Substance: TRALOKINUMAB
     Indication: ASTHMA
     Route: 058
     Dates: start: 20150724
  14. SALBUTAMOL [Suspect]
     Active Substance: ALBUTEROL
     Indication: ASTHMA
     Dosage: AS REQUIRED
     Route: 055
  15. SULPIRIDE [Concomitant]
     Active Substance: SULPIRIDE
     Route: 048
     Dates: start: 20160526
  16. GINKGO BILOBA [Concomitant]
     Active Substance: GINKGO
     Indication: CARDIOVASCULAR INSUFFICIENCY
     Route: 048
     Dates: start: 20160721
  17. CAT-354 CODE NOT BROKEN [Suspect]
     Active Substance: TRALOKINUMAB
     Indication: ASTHMA
     Route: 058
     Dates: start: 20151113
  18. CAT-354 CODE NOT BROKEN [Suspect]
     Active Substance: TRALOKINUMAB
     Indication: ASTHMA
     Route: 058
     Dates: start: 20160205
  19. CAT-354 CODE NOT BROKEN [Suspect]
     Active Substance: TRALOKINUMAB
     Indication: ASTHMA
     Route: 058
     Dates: start: 20160526
  20. CAT-354 CODE NOT BROKEN [Suspect]
     Active Substance: TRALOKINUMAB
     Indication: ASTHMA
     Route: 058
     Dates: start: 20160426
  21. TELMISARTAN. [Concomitant]
     Active Substance: TELMISARTAN
     Indication: HYPERTENSION
     Route: 048
     Dates: start: 20160426, end: 20160524

REACTIONS (1)
  - Asthma [Recovered/Resolved]

NARRATIVE: CASE EVENT DATE: 20160829
